FAERS Safety Report 16121862 (Version 1)
Quarter: 2019Q2

REPORT INFORMATION
  Report Type: Spontaneous
  Country: US (occurrence: US)
  Receive Date: 20190326
  Receipt Date: 20190326
  Transmission Date: 20190711
  Serious: Yes (Hospitalization, Disabling)
  Sender: FDA-Public Use
  Company Number: None

PATIENT
  Sex: Male

DRUGS (16)
  1. METHOTREXATE 2.5MG TABLETS [Concomitant]
     Active Substance: METHOTREXATE
     Dates: start: 20190123
  2. LEVOTHYROXINE 175MCG TABLETS [Concomitant]
     Dates: start: 20180703
  3. GLIMEPIRIDE 4MG TABLETS [Concomitant]
     Dates: start: 20180827
  4. CONTOUR NEXT TEST [Concomitant]
     Dates: start: 20190225
  5. LOSARTAN POTASSIUM 100MG TABLETS [Concomitant]
     Dates: start: 20181126
  6. METFORMIN 1000MG TABLETS [Concomitant]
     Active Substance: METFORMIN HYDROCHLORIDE
     Dates: start: 20190115
  7. ALBUTEROL NEBULIZER 0.083% [Concomitant]
     Dates: start: 20190202
  8. ZYTREC ALLERGY 10MG TABLETS [Concomitant]
     Dates: start: 20190325
  9. NAPROXEN 500MG TABLETS [Concomitant]
     Dates: start: 20190123
  10. LEVOTHYROXINE 150MCG TABLETS [Concomitant]
     Dates: start: 20181019
  11. ENBREL [Suspect]
     Active Substance: ETANERCEPT
     Indication: RHEUMATOID ARTHRITIS
     Dosage: ?          OTHER FREQUENCY:EVERY WEEK;?
     Route: 058
     Dates: start: 20180511
  12. JANUVIA [Concomitant]
     Active Substance: SITAGLIPTIN PHOSPHATE
     Dates: start: 20190215
  13. FOLIC ACID 1000MCG TABLETS [Concomitant]
     Dates: start: 20190215
  14. PROAIR HFA AERSOL [Concomitant]
     Dates: start: 20190220
  15. OXYCODONE 5MG TABLETS [Concomitant]
     Dates: start: 20190321
  16. ATORVASTATIN 20MG TABLETS [Concomitant]
     Active Substance: ATORVASTATIN
     Dates: start: 20180925

REACTIONS (6)
  - Rash [None]
  - Performance status decreased [None]
  - Therapeutic product effect decreased [None]
  - Depression [None]
  - Therapy cessation [None]
  - Pneumonia [None]
